FAERS Safety Report 6665532-4 (Version None)
Quarter: 2010Q2

REPORT INFORMATION
  Report Type: 
  Country: None (occurrence: None)
  Receive Date: 20100402
  Receipt Date: 20100329
  Transmission Date: 20101027
  Serious: Yes (Hospitalization)
  Sender: FDA-Public Use
  Company Number: US-ASTRAZENECA-2010SE13822

PATIENT
  Age: 68 Year
  Sex: Female
  Weight: 79.4 kg

DRUGS (4)
  1. SEROQUEL [Suspect]
     Indication: BIPOLAR DISORDER
     Dosage: 200 MG IN THE MORNING+ 400 MG AT BEDTIME, DAILY
     Route: 048
     Dates: start: 20060101
  2. VESICARE [Concomitant]
  3. KLONAPIN [Concomitant]
  4. LEXAPRO [Concomitant]

REACTIONS (2)
  - BACK PAIN [None]
  - EMERGENCY CARE [None]
